FAERS Safety Report 8887537 (Version 1)
Quarter: 2012Q4

REPORT INFORMATION
  Report Type: Spontaneous
  Country: CA (occurrence: None)
  Receive Date: 20121031
  Receipt Date: 20121031
  Transmission Date: 20130627
  Serious: Yes (Life-Threatening, Hospitalization, Other)
  Sender: FDA-Public Use
  Company Number: FK201203130

PATIENT
  Age: 34 Year
  Sex: Female
  Weight: 108.86 kg

DRUGS (4)
  1. CHORIONIC GONADOTROPIN [Suspect]
     Route: 030
  2. ESTRACE [Suspect]
     Route: 048
  3. GONAL-F [Suspect]
     Route: 058
  4. MENOPUR [Suspect]
     Route: 058

REACTIONS (3)
  - Mass [None]
  - Pulmonary mass [None]
  - Dyspnoea [None]
